FAERS Safety Report 4408465-6 (Version None)
Quarter: 2004Q3

REPORT INFORMATION
  Report Type: 
  Country: None (occurrence: None)
  Receive Date: 20040723
  Receipt Date: 20040712
  Transmission Date: 20050211
  Serious: Yes (Life-Threatening, Hospitalization)
  Sender: FDA-Public Use
  Company Number: HQWYE014113JUL04

PATIENT
  Age: 11 Year
  Sex: Female

DRUGS (7)
  1. RAPAMUNE [Suspect]
     Indication: IMMUNOSUPPRESSANT DRUG THERAPY
     Dosage: ^2 CAPSULES DAILY^ ORAL
     Route: 048
     Dates: start: 20040127, end: 20040503
  2. RAPAMUNE [Suspect]
     Indication: IMMUNOSUPPRESSANT DRUG THERAPY
     Dosage: ^2 CAPSULES DAILY^ ORAL
     Route: 048
     Dates: start: 20030716
  3. RAPAMUNE [Suspect]
  4. TACROLIMUS (TACROLIMUS) [Concomitant]
  5. ONE-ALPHA (ALFACALCIDOL) [Concomitant]
  6. FERROUS SULFATE TAB [Concomitant]
  7. PEOGEN (EPOETIN ALFA) [Concomitant]

REACTIONS (7)
  - CITROBACTER INFECTION [None]
  - COMPLICATIONS OF TRANSPLANT SURGERY [None]
  - CULTURE URINE POSITIVE [None]
  - DIARRHOEA [None]
  - DRUG INEFFECTIVE [None]
  - KIDNEY TRANSPLANT REJECTION [None]
  - PYELONEPHRITIS [None]
